FAERS Safety Report 19144125 (Version 3)
Quarter: 2025Q1

REPORT INFORMATION
  Report Type: Report from Study
  Country: CA (occurrence: CA)
  Receive Date: 20210416
  Receipt Date: 20250212
  Transmission Date: 20250408
  Serious: Yes (Hospitalization, Other)
  Sender: CSL BEHRING
  Company Number: CA-BEH-2021129682

PATIENT
  Age: 71 Year
  Sex: Male
  Weight: 63.5 kg

DRUGS (2)
  1. HIZENTRA [Suspect]
     Active Substance: HUMAN IMMUNOGLOBULIN G
     Indication: Chronic inflammatory demyelinating polyradiculoneuropathy
     Dosage: 12 G, QW
     Route: 058
     Dates: start: 20201216
  2. HIZENTRA [Suspect]
     Active Substance: HUMAN IMMUNOGLOBULIN G
     Indication: Secondary immunodeficiency
     Route: 065

REACTIONS (6)
  - Bacteraemia [Unknown]
  - COVID-19 [Unknown]
  - Therapy interrupted [Unknown]
  - Therapy interrupted [Unknown]
  - Malaise [Unknown]
  - Weight decreased [Unknown]
